FAERS Safety Report 7585724-X (Version None)
Quarter: 2011Q3

REPORT INFORMATION
  Report Type: 
  Country: None (occurrence: None)
  Receive Date: 20110701
  Receipt Date: 20110627
  Transmission Date: 20111222
  Serious: Yes (Hospitalization, Other)
  Sender: FDA-Public Use
  Company Number: US-SANOFI-AVENTIS-2011SA040835

PATIENT
  Age: 80 Year
  Sex: Female

DRUGS (2)
  1. ANTITHROMBOTIC AGENTS [Suspect]
     Route: 051
  2. LOVENOX [Suspect]
     Indication: THROMBOSIS PROPHYLAXIS
     Route: 051
     Dates: start: 20101001, end: 20110201

REACTIONS (4)
  - INJECTION SITE HAEMORRHAGE [None]
  - LOSS OF CONSCIOUSNESS [None]
  - FALL [None]
  - EPISTAXIS [None]
